FAERS Safety Report 24761983 (Version 1)
Quarter: 2024Q4

REPORT INFORMATION
  Report Type: Report from Study
  Country: US (occurrence: US)
  Receive Date: 20241221
  Receipt Date: 20241221
  Transmission Date: 20250115
  Serious: Yes (Hospitalization)
  Sender: ABBVIE
  Company Number: US-ABBVIE-6050559

PATIENT
  Age: 23 Year
  Sex: Male

DRUGS (1)
  1. RINVOQ [Suspect]
     Active Substance: UPADACITINIB
     Indication: Product used for unknown indication
     Route: 048
     Dates: start: 202409

REACTIONS (6)
  - Eosinophilic oesophagitis [Unknown]
  - Multiple allergies [Unknown]
  - Asthma [Unknown]
  - Nasopharyngitis [Unknown]
  - Dermatitis allergic [Unknown]
  - Eye allergy [Unknown]

NARRATIVE: CASE EVENT DATE: 20240101
